FAERS Safety Report 9422416 (Version 3)
Quarter: 2013Q4

REPORT INFORMATION
  Report Type: Spontaneous
  Country: FR (occurrence: FR)
  Receive Date: 20130726
  Receipt Date: 20131230
  Transmission Date: 20140711
  Serious: Yes (Disabling)
  Sender: FDA-Public Use
  Company Number: FR-SANOFI-AVENTIS-2013SA071735

PATIENT
  Age: 79 Year
  Sex: Male

DRUGS (5)
  1. PLAVIX [Suspect]
     Indication: PRODUCT USED FOR UNKNOWN INDICATION
     Route: 048
     Dates: start: 2010, end: 20120731
  2. CRESTOR [Concomitant]
     Dosage: STRENGTH: 10 MG
     Route: 048
  3. KARDEGIC [Concomitant]
     Dosage: STRENGTH: 75 MG
     Route: 048
  4. OMEPRAZOLE [Concomitant]
     Dosage: STRENGTH: 20 MG
     Route: 048
  5. COVERSYL [Concomitant]
     Route: 048

REACTIONS (1)
  - Fatigue [Unknown]
